FAERS Safety Report 8955577 (Version 1)
Quarter: 2012Q4

REPORT INFORMATION
  Report Type: 
  Country: US (occurrence: US)
  Receive Date: 20121207
  Receipt Date: 20121207
  Transmission Date: 20130627
  Serious: Yes (Hospitalization)
  Sender: FDA-Public Use
  Company Number: US-PFIZER INC-2005113113

PATIENT
  Age: 87 Year
  Sex: Female

DRUGS (5)
  1. IBUPROFEN [Suspect]
     Indication: ARTHRITIS
     Dosage: UNSPECIFIED
     Route: 065
     Dates: start: 2005, end: 200507
  2. TYLENOL [Suspect]
     Indication: DRUG USE FOR UNKNOWN INDICATION
     Dosage: UNSPECIFIED
     Route: 065
  3. VIOXX [Suspect]
     Indication: DRUG USE FOR UNKNOWN INDICATION
     Dosage: UNSPECIFIED
     Route: 065
  4. FOSAMAX [Suspect]
     Indication: ARTHRITIS
     Dosage: 1 IN 1 WEEK
     Route: 065
     Dates: start: 2005
  5. VITAMINS [Concomitant]
     Dosage: UNSPECIFIED
     Route: 065
     Dates: start: 1955

REACTIONS (1)
  - Ulcer haemorrhage [Unknown]
